FAERS Safety Report 20326125 (Version 2)
Quarter: 2022Q1

REPORT INFORMATION
  Report Type: Spontaneous
  Country: None (occurrence: US)
  Receive Date: 20220112
  Receipt Date: 20220121
  Transmission Date: 20220424
  Serious: No
  Sender: FDA-Public Use
  Company Number: US-Changzhou Pharmaceutical Factory-2123840

PATIENT

DRUGS (1)
  1. ROSUVASTATIN CALCIUM [Suspect]
     Active Substance: ROSUVASTATIN CALCIUM
     Indication: Product used for unknown indication
     Route: 065
     Dates: start: 20211109

REACTIONS (3)
  - Pruritus [Recovering/Resolving]
  - Product substitution issue [Unknown]
  - Scratch [Recovering/Resolving]

NARRATIVE: CASE EVENT DATE: 20211109
